FAERS Safety Report 5624005-8 (Version None)
Quarter: 2008Q1

REPORT INFORMATION
  Report Type: 
  Country: None (occurrence: None)
  Receive Date: 20080208
  Receipt Date: 20080208
  Transmission Date: 20080703
  Serious: Yes (Hospitalization)
  Sender: FDA-Public Use
  Company Number: None

PATIENT
  Sex: Male
  Weight: 88.6 kg

DRUGS (3)
  1. FLUOROURACIL [Suspect]
     Dosage: 21936 MG
     Dates: end: 20080205
  2. LEUCOVORIN CALCIUM [Suspect]
     Dosage: 3136 MG
     Dates: end: 20080205
  3. ELOXATIN [Suspect]
     Dosage: 430 MG
     Dates: end: 20080205

REACTIONS (6)
  - CARDIAC VENTRICULAR DISORDER [None]
  - CHEST PAIN [None]
  - DYSPNOEA EXERTIONAL [None]
  - GASTROINTESTINAL STOMA COMPLICATION [None]
  - GASTROOESOPHAGEAL REFLUX DISEASE [None]
  - PARAESTHESIA [None]
